FAERS Safety Report 8922799 (Version 2)
Quarter: 2012Q4

REPORT INFORMATION
  Report Type: 
  Country: US (occurrence: US)
  Receive Date: 20121125
  Receipt Date: 20121221
  Transmission Date: 20130627
  Serious: Yes (Other)
  Sender: FDA-Public Use
  Company Number: US-BAYER-2012-120688

PATIENT
  Age: 25 Year
  Sex: Female

DRUGS (1)
  1. MIRENA [Suspect]
     Indication: CONTRACEPTION
     Dosage: 20 mcg/24hr, CONT
     Route: 015
     Dates: start: 20120928, end: 20121120

REACTIONS (6)
  - Genital haemorrhage [None]
  - Procedural pain [None]
  - Dyspareunia [None]
  - Medical device discomfort [None]
  - Pelvic pain [None]
  - Pain [None]
